FAERS Safety Report 17088365 (Version 1)
Quarter: 2019Q4

REPORT INFORMATION
  Report Type: Spontaneous
  Country: US (occurrence: US)
  Receive Date: 20191128
  Receipt Date: 20191128
  Transmission Date: 20200122
  Serious: Yes (Other)
  Sender: FDA-Public Use
  Company Number: US-SUNOVION-2019SUN005157

PATIENT
  Age: 34 Year
  Sex: Male
  Weight: 86.17 kg

DRUGS (2)
  1. APTIOM [Suspect]
     Active Substance: ESLICARBAZEPINE ACETATE
     Dosage: UNK (INCREASED OVER TIME TO CURRENT DOSE)
     Route: 048
     Dates: start: 201804
  2. APTIOM [Suspect]
     Active Substance: ESLICARBAZEPINE ACETATE
     Indication: GENERALISED TONIC-CLONIC SEIZURE
     Dosage: 800 MG, QD
     Route: 048

REACTIONS (3)
  - Intentional self-injury [Not Recovered/Not Resolved]
  - Off label use [Unknown]
  - Behaviour disorder [Not Recovered/Not Resolved]
